FAERS Safety Report 19731938 (Version 1)
Quarter: 2021Q3

REPORT INFORMATION
  Report Type: Report from Study
  Country: ZA (occurrence: ZA)
  Receive Date: 20210820
  Receipt Date: 20210820
  Transmission Date: 20211014
  Serious: Yes (Other)
  Sender: FDA-Public Use
  Company Number: ZA-REGENERON PHARMACEUTICALS, INC.-2021-78022

PATIENT

DRUGS (5)
  1. EYLEA [Suspect]
     Active Substance: AFLIBERCEPT
     Indication: AGE-RELATED MACULAR DEGENERATION
  2. VISUDYNE [Concomitant]
     Active Substance: VERTEPORFIN
     Indication: HAEMANGIOBLASTOMA
  3. EYLEA [Suspect]
     Active Substance: AFLIBERCEPT
     Indication: HAEMANGIOBLASTOMA
     Dosage: 1 DF, UNK
     Dates: start: 20200221
  4. EYLEA [Suspect]
     Active Substance: AFLIBERCEPT
     Indication: VON HIPPEL-LINDAU DISEASE
  5. VITREAL S [Concomitant]
     Indication: PRODUCT USED FOR UNKNOWN INDICATION
     Dosage: UNK
     Dates: start: 2019

REACTIONS (2)
  - Haemangioblastoma [Unknown]
  - Off label use [Unknown]
